FAERS Safety Report 18530352 (Version 1)
Quarter: 2020Q4

REPORT INFORMATION
  Report Type: Spontaneous
  Country: US (occurrence: US)
  Receive Date: 20201120
  Receipt Date: 20201120
  Transmission Date: 20210114
  Serious: Yes (Hospitalization, Other)
  Sender: FDA-Public Use
  Company Number: US-AUROBINDO-AUR-APL-2020-056694

PATIENT
  Age: 32 Year
  Sex: Female

DRUGS (8)
  1. SEVOFLURANE. [Suspect]
     Active Substance: SEVOFLURANE
     Indication: GENERAL ANAESTHESIA
     Dosage: UNK
     Route: 065
  2. PROPOFOL. [Suspect]
     Active Substance: PROPOFOL
     Indication: GENERAL ANAESTHESIA
     Dosage: 300 MILLIGRAM (IN TWO DIVIDED DOSES)
     Route: 065
  3. SUCCINYLCHOLINE [Suspect]
     Active Substance: SUCCINYLCHOLINE
     Indication: GENERAL ANAESTHESIA
     Dosage: 100 MILLIGRAM
     Route: 065
  4. ALBUTEROL. [Concomitant]
     Active Substance: ALBUTEROL
     Indication: WHEEZING
     Dosage: UNK, 2 PUFFS EVERY 4 HOURS AS NEEDED
     Route: 065
  5. DEXAMETHASONE. [Suspect]
     Active Substance: DEXAMETHASONE
     Indication: GENERAL ANAESTHESIA
     Dosage: 4 MILLIGRAM
     Route: 042
  6. ONDANSETRON [Concomitant]
     Active Substance: ONDANSETRON
     Indication: PRODUCT USED FOR UNKNOWN INDICATION
     Dosage: 4 MILLIGRAM
     Route: 065
  7. LIDOCAINE. [Concomitant]
     Active Substance: LIDOCAINE
     Indication: PRODUCT USED FOR UNKNOWN INDICATION
     Dosage: 100 MILLIGRAM
     Route: 065
  8. MAGNESIUM CITRATE. [Concomitant]
     Active Substance: MAGNESIUM CITRATE
     Indication: COLONOSCOPY
     Dosage: UNK, USED AS DIRECTED
     Route: 065

REACTIONS (2)
  - Musculoskeletal pain [Unknown]
  - Rhabdomyolysis [Unknown]
